FAERS Safety Report 5749687-1 (Version None)
Quarter: 2008Q2

REPORT INFORMATION
  Report Type: 
  Country: None (occurrence: None)
  Receive Date: 20080521
  Receipt Date: 20080521
  Transmission Date: 20081010
  Serious: Yes (Hospitalization, Disabling)
  Sender: FDA-Public Use
  Company Number: None

PATIENT
  Age: 43 Year
  Sex: Male
  Weight: 53 kg

DRUGS (2)
  1. METHOTREXATE [Suspect]
     Indication: DRUG TOXICITY
     Dosage: 30 MG/M2 (50 MG) D1 +D4 IV
     Route: 042
     Dates: start: 20080205, end: 20080208
  2. IMVP [Concomitant]

REACTIONS (5)
  - HYPOTENSION [None]
  - NEPHROPATHY TOXIC [None]
  - PANCYTOPENIA [None]
  - RENAL FAILURE ACUTE [None]
  - RENAL TRANSPLANT [None]
